FAERS Safety Report 6252700-9 (Version None)
Quarter: 2009Q2

REPORT INFORMATION
  Report Type: 
  Country: None (occurrence: None)
  Receive Date: 20090629
  Receipt Date: 20090618
  Transmission Date: 20091009
  Serious: Yes (Other)
  Sender: FDA-Public Use
  Company Number: 2009US001893

PATIENT
  Age: 60 Year
  Sex: Male

DRUGS (12)
  1. LEXISCAN [Suspect]
     Indication: SCAN MYOCARDIAL PERFUSION
     Dosage: IV NOS
     Route: 042
     Dates: start: 20090519, end: 20090519
  2. DILTIAZEM [Concomitant]
  3. METFORMIN HCL [Concomitant]
  4. METOLAZONE [Concomitant]
  5. LASIX [Concomitant]
  6. LOPID [Concomitant]
  7. POTASSIUM (POTASSIUM) [Concomitant]
  8. ACTOS [Concomitant]
  9. AVAPRO [Concomitant]
  10. GLIPIZIDE [Concomitant]
  11. LISINOPRIL [Concomitant]
  12. ALBUTEROL (SALBUTAMOL SULFATE) [Concomitant]

REACTIONS (7)
  - DIZZINESS [None]
  - EYE ROLLING [None]
  - FLUSHING [None]
  - HEART RATE INCREASED [None]
  - HYPERHIDROSIS [None]
  - SYNCOPE [None]
  - UNRESPONSIVE TO STIMULI [None]
